FAERS Safety Report 8231949-X (Version None)
Quarter: 2012Q1

REPORT INFORMATION
  Report Type: 
  Country: None (occurrence: None)
  Receive Date: 20120323
  Receipt Date: 20120309
  Transmission Date: 20120608
  Serious: Yes (Death)
  Sender: FDA-Public Use
  Company Number: FR-ROCHE-1047732

PATIENT
  Sex: Male

DRUGS (16)
  1. AVASTIN [Suspect]
     Dosage: FOR 7 CYCLES
     Route: 042
     Dates: start: 20110901, end: 20111208
  2. GLUCOPHAGE [Concomitant]
  3. TRANDOLAPRIL [Concomitant]
  4. FLUOROURACIL [Suspect]
     Indication: SMALL INTESTINE CARCINOMA
     Dosage: FOR 8 CYCLES
     Route: 042
     Dates: start: 20110818, end: 20111208
  5. VALSARTAN  AND HYDROCHLOROTHIAZIDE [Concomitant]
  6. AMLODIPINE [Concomitant]
     Dates: start: 20111101
  7. LEUCOVORIN CALCIUM [Concomitant]
  8. BISOPROLOL FUMARATE [Concomitant]
  9. RASILEZ [Concomitant]
  10. ACETAMINOPHEN [Concomitant]
  11. ALLOPURINOL [Concomitant]
     Dates: start: 20111101
  12. AVASTIN [Suspect]
     Indication: COLON CANCER
     Dates: start: 20110818
  13. ASPIRIN [Concomitant]
  14. OXALIPLATIN [Suspect]
     Indication: COLON CANCER
     Dosage: FOR 8 CYCLES
     Route: 042
     Dates: start: 20110818, end: 20111208
  15. PRAVASTATIN [Concomitant]
  16. ARTHROTEC [Concomitant]

REACTIONS (2)
  - LARGE INTESTINE PERFORATION [None]
  - COLITIS ISCHAEMIC [None]
